FAERS Safety Report 8577361-5 (Version None)
Quarter: 2012Q3

REPORT INFORMATION
  Report Type: 
  Country: None (occurrence: None)
  Receive Date: 20120807
  Receipt Date: 20120801
  Transmission Date: 20120928
  Serious: Yes (Death, Life-Threatening, Hospitalization, Disabling, Other)
  Sender: FDA-Public Use
  Company Number: FR-TEVA-329862USA

PATIENT
  Age: 66 Year
  Sex: Male
  Weight: 82 kg

DRUGS (5)
  1. TREANDA [Suspect]
     Indication: BONE MARROW CONDITIONING REGIMEN
     Dosage: 180 MG/M2 DAILY; 358.5 MG ON DAY 1 + 2 OF EACH CYCLE
     Route: 042
     Dates: start: 20120227, end: 20120228
  2. MELPHALAN HYDROCHLORIDE [Suspect]
     Indication: BONE MARROW CONDITIONING REGIMEN
     Dosage: 250 MG TOTAL DOSE
     Dates: start: 20120303
  3. CYTARABINE [Suspect]
     Indication: BONE MARROW CONDITIONING REGIMEN
     Route: 041
     Dates: start: 20120228, end: 20120302
  4. ETOPOSIDE [Suspect]
     Indication: BONE MARROW CONDITIONING REGIMEN
     Dosage: 400 MG/M2 DAILY; UID/QD
     Dates: start: 20120228, end: 20120302
  5. TREANDA [Suspect]
     Indication: NON-HODGKIN'S LYMPHOMA

REACTIONS (36)
  - MENINGEAL DISORDER [None]
  - MONOPARESIS [None]
  - COUGH [None]
  - PYREXIA [None]
  - CANDIDIASIS [None]
  - CREPITATIONS [None]
  - BLOOD CREATININE INCREASED [None]
  - RENAL FAILURE ACUTE [None]
  - LOSS OF CONSCIOUSNESS [None]
  - EYE MOVEMENT DISORDER [None]
  - PLEURAL EFFUSION [None]
  - MUCOSAL INFLAMMATION [None]
  - STENOTROPHOMONAS INFECTION [None]
  - INFLAMMATION [None]
  - PANCYTOPENIA [None]
  - JUGULAR VEIN THROMBOSIS [None]
  - THROMBOCYTOPENIA [None]
  - HYPERPHOSPHATAEMIA [None]
  - GENERAL PHYSICAL HEALTH DETERIORATION [None]
  - CITROBACTER INFECTION [None]
  - COMA [None]
  - OEDEMA PERIPHERAL [None]
  - GENERALISED OEDEMA [None]
  - DEVICE RELATED INFECTION [None]
  - APLASIA [None]
  - MALAISE [None]
  - NEUTROPENIA [None]
  - HYPERURICAEMIA [None]
  - DIARRHOEA [None]
  - DYSPNOEA [None]
  - HYPERNATRAEMIA [None]
  - NEPHROGENIC DIABETES INSIPIDUS [None]
  - WEIGHT INCREASED [None]
  - CONVULSION [None]
  - PLEURISY [None]
  - MYALGIA [None]
